FAERS Safety Report 7084869-0 (Version None)
Quarter: 2010Q4

REPORT INFORMATION
  Report Type: 
  Country: None (occurrence: None)
  Receive Date: 20101103
  Receipt Date: 20101103
  Transmission Date: 20110411
  Serious: No
  Sender: FDA-Public Use
  Company Number: None

PATIENT
  Age: 32 Year
  Sex: Female
  Weight: 99.7913 kg

DRUGS (3)
  1. PROZAC [Suspect]
     Indication: DEPRESSION
     Dosage: 40 MG QAM PO
     Route: 048
     Dates: start: 20090101, end: 20101102
  2. PROZAC [Suspect]
     Indication: PANIC DISORDER
     Dosage: 40 MG QAM PO
     Route: 048
     Dates: start: 20090101, end: 20101102
  3. VINACAL PRENATAL VITAMINS [Concomitant]

REACTIONS (2)
  - DRUG EXPOSURE DURING PREGNANCY [None]
  - PREGNANCY [None]
